FAERS Safety Report 9031579 (Version 3)
Quarter: 2013Q3

REPORT INFORMATION
  Report Type: Spontaneous
  Country: PT (occurrence: PT)
  Receive Date: 20130124
  Receipt Date: 20130709
  Transmission Date: 20140515
  Serious: Yes (Disabling, Other)
  Sender: FDA-Public Use
  Company Number: PT-ROCHE-1179226

PATIENT
  Age: 45 Year
  Sex: Male
  Weight: 63 kg

DRUGS (7)
  1. PEGASYS [Suspect]
     Indication: HEPATITIS C
     Dosage: SOLUTION FOR INJECTION
     Route: 058
     Dates: start: 20120727
  2. PEGASYS [Suspect]
     Dosage: SOLUTION FOR INJECTION
     Route: 058
     Dates: start: 20130104
  3. PEGASYS [Suspect]
     Dosage: SOLUTION FOR INJECTION
     Route: 058
     Dates: start: 20130104
  4. PEGASYS [Suspect]
     Dosage: SOLUTION FOR INJECTION
     Route: 058
  5. REBETOL [Concomitant]
     Indication: HEPATITIS C
     Route: 048
     Dates: start: 20120727
  6. REBETOL [Concomitant]
     Route: 048
     Dates: start: 20130104
  7. IBUPROFEN [Concomitant]
     Route: 048
     Dates: start: 20120727

REACTIONS (5)
  - Eye disorder [Recovered/Resolved]
  - Eye irritation [Recovered/Resolved]
  - Eye pain [Recovered/Resolved]
  - Eye pruritus [Recovered/Resolved]
  - Thrombocytopenia [Recovered/Resolved]
